FAERS Safety Report 8574627 (Version 2)
Quarter: 2015Q2

REPORT INFORMATION
  Report Type: Spontaneous
  Country: ES (occurrence: ES)
  Receive Date: 20120522
  Receipt Date: 20150529
  Transmission Date: 20150821
  Serious: Yes (Life-Threatening, Hospitalization)
  Sender: FDA-Public Use
  Company Number: ES-JNJFOC-20120513188

PATIENT
  Age: 71 Year
  Sex: Male

DRUGS (4)
  1. SIMVASTATIN. [Concomitant]
     Active Substance: SIMVASTATIN
     Indication: HYPERLIPIDAEMIA
     Route: 048
     Dates: start: 201011, end: 20110820
  2. ESCITALOPRAM [Suspect]
     Active Substance: ESCITALOPRAM OXALATE
     Indication: PARKINSON^S DISEASE
     Route: 048
     Dates: start: 200808, end: 20110820
  3. RISPERDAL [Suspect]
     Active Substance: RISPERIDONE
     Indication: PARKINSON^S DISEASE
     Route: 048
     Dates: start: 20110816, end: 20110820
  4. QUETIAPINE [Interacting]
     Active Substance: QUETIAPINE
     Indication: PARKINSON^S DISEASE
     Route: 048
     Dates: start: 201008, end: 20110820

REACTIONS (4)
  - Tachycardia [Recovered/Resolved]
  - Hypotension [Unknown]
  - Epistaxis [Recovered/Resolved]
  - Drug interaction [Recovered/Resolved]

NARRATIVE: CASE EVENT DATE: 20110820
